FAERS Safety Report 9757451 (Version 1)
Quarter: 2013Q4

REPORT INFORMATION
  Report Type: Spontaneous
  Country: CA (occurrence: CA)
  Receive Date: 20131215
  Receipt Date: 20131215
  Transmission Date: 20140711
  Serious: No
  Sender: FDA-Public Use
  Company Number: CA-009507513-1312CAN004973

PATIENT
  Sex: Male

DRUGS (1)
  1. SAPHRIS [Suspect]
     Indication: PRODUCT USED FOR UNKNOWN INDICATION
     Dosage: UNK
     Route: 060

REACTIONS (1)
  - Rash [Recovered/Resolved]
